FAERS Safety Report 6113834-2 (Version None)
Quarter: 2009Q1

REPORT INFORMATION
  Report Type: 
  Country: None (occurrence: None)
  Receive Date: 20090312
  Receipt Date: 20090306
  Transmission Date: 20090719
  Serious: Yes (Hospitalization)
  Sender: FDA-Public Use
  Company Number: US-ABBOTT-08P-163-0469120-00

PATIENT
  Sex: Female
  Weight: 71.732 kg

DRUGS (15)
  1. HUMIRA [Suspect]
     Indication: RHEUMATOID ARTHRITIS
     Route: 050
     Dates: start: 20080101
  2. METHYLPREDNISOLONE 4MG TAB [Concomitant]
     Indication: RHEUMATOID ARTHRITIS
     Route: 048
     Dates: start: 20030101
  3. VERAPAMIL [Concomitant]
     Indication: HYPERTENSION
     Route: 048
     Dates: start: 20030101
  4. SINGULAIR [Concomitant]
     Indication: ASTHMA
     Route: 048
     Dates: start: 20030101
  5. SINGULAIR [Concomitant]
     Indication: ALLERGIC SINUSITIS
  6. PROPOXYPHENE HYDROCHLORIDE [Concomitant]
     Indication: PAIN
     Dosage: 100/650 MG
     Route: 048
     Dates: start: 20050101
  7. NEXIUM [Concomitant]
     Indication: DRUG USE FOR UNKNOWN INDICATION
     Route: 048
     Dates: start: 20070101
  8. IPRATROPIUM BROMIDE [Concomitant]
     Indication: ASTHMA
     Dosage: SPRAY
     Route: 045
     Dates: start: 20030101
  9. IPRATROPIUM BROMIDE [Concomitant]
     Indication: ALLERGIC SINUSITIS
  10. ZYRTEC [Concomitant]
     Indication: ASTHMA
     Route: 048
     Dates: start: 20030101
  11. ZYRTEC [Concomitant]
     Indication: ALLERGIC SINUSITIS
  12. SUDAFED 12 HOUR [Concomitant]
     Indication: ASTHMA
     Route: 048
     Dates: start: 20030101
  13. SUDAFED 12 HOUR [Concomitant]
     Indication: ALLERGIC SINUSITIS
  14. CLARITIN [Concomitant]
     Indication: ASTHMA
     Route: 048
     Dates: start: 20030101
  15. CLARITIN [Concomitant]
     Indication: ALLERGIC SINUSITIS

REACTIONS (5)
  - ARTHROPATHY [None]
  - BLOOD POTASSIUM DECREASED [None]
  - FALL [None]
  - LIGAMENT DISORDER [None]
  - RHEUMATOID ARTHRITIS [None]
